FAERS Safety Report 13174942 (Version 1)
Quarter: 2017Q1

REPORT INFORMATION
  Report Type: Spontaneous
  Country: US (occurrence: US)
  Receive Date: 20170201
  Receipt Date: 20170201
  Transmission Date: 20170428
  Serious: No
  Sender: FDA-Public Use
  Company Number: US-ABBVIE-16P-163-1749952-00

PATIENT
  Sex: Female

DRUGS (4)
  1. HUMIRA [Suspect]
     Active Substance: ADALIMUMAB
     Indication: RHEUMATOID ARTHRITIS
     Route: 058
     Dates: start: 2008, end: 200903
  2. ORENCIA [Suspect]
     Active Substance: ABATACEPT
     Indication: RHEUMATOID ARTHRITIS
     Dosage: FOR 1 HOUR
     Route: 065
     Dates: start: 2009, end: 201105
  3. RITUXAN [Suspect]
     Active Substance: RITUXIMAB
     Indication: RHEUMATOID ARTHRITIS
     Dosage: 2 LONG INFUSIONS 2 WEEKS APART EVERY 6 MONTHS
     Route: 065
     Dates: start: 20150707, end: 2016
  4. ACTEMRA [Suspect]
     Active Substance: TOCILIZUMAB
     Indication: RHEUMATOID ARTHRITIS
     Dosage: FOR 2 HOURS
     Route: 065
     Dates: start: 201106, end: 201505

REACTIONS (6)
  - Drug ineffective [Unknown]
  - Unevaluable event [Unknown]
  - Drug ineffective [Unknown]
  - Drug ineffective [Unknown]
  - Dyspnoea [Unknown]
  - Drug ineffective [Unknown]

NARRATIVE: CASE EVENT DATE: 200902
